FAERS Safety Report 13585234 (Version 1)
Quarter: 2017Q2

REPORT INFORMATION
  Report Type: Spontaneous
  Country: US (occurrence: US)
  Receive Date: 20170526
  Receipt Date: 20170526
  Transmission Date: 20170830
  Serious: Yes (Other)
  Sender: FDA-Public Use
  Company Number: US-SUNOVION-2017SUN002258

PATIENT

DRUGS (4)
  1. LATUDA [Suspect]
     Active Substance: LURASIDONE HYDROCHLORIDE
     Dosage: UNK
     Route: 048
  2. KLONOPIN [Suspect]
     Active Substance: CLONAZEPAM
     Dosage: 4 DF, SINGLE
  3. LATUDA [Suspect]
     Active Substance: LURASIDONE HYDROCHLORIDE
     Dosage: 2 DF, SINGLE
  4. KLONOPIN [Suspect]
     Active Substance: CLONAZEPAM
     Dosage: UNK

REACTIONS (2)
  - Suicide attempt [Unknown]
  - Intentional overdose [Unknown]
